FAERS Safety Report 9285350 (Version 1)
Quarter: 2013Q2

REPORT INFORMATION
  Report Type: Spontaneous
  Country: US (occurrence: US)
  Receive Date: 20130513
  Receipt Date: 20130513
  Transmission Date: 20140414
  Serious: Yes (Death, Other)
  Sender: FDA-Public Use
  Company Number: US-ASTELLAS-2013US004007

PATIENT
  Age: 78 Year
  Sex: Male
  Weight: 106 kg

DRUGS (8)
  1. XTANDI [Suspect]
     Indication: PROSTATE CANCER METASTATIC
     Dosage: 160 MG, UID/QD
     Route: 048
     Dates: start: 20121211, end: 20121212
  2. XTANDI [Suspect]
     Dosage: 160 MG, UID/QD
     Route: 048
  3. XTANDI [Suspect]
     Dosage: 40 MG, UID/QD
     Route: 048
  4. XTANDI [Suspect]
     Dosage: 80 MG, UID/QD
     Route: 048
  5. XTANDI [Suspect]
     Dosage: 120 MG, UID/QD
     Route: 048
  6. XTANDI [Suspect]
     Dosage: UNK
     Route: 048
     Dates: end: 201302
  7. OXYCONTIN [Suspect]
     Indication: PAIN
     Dosage: 140 MG, TID
     Route: 065
  8. PREDNISONE [Concomitant]
     Indication: PROSTATE CANCER
     Dosage: 5 MG, BID
     Route: 065
     Dates: start: 20111014

REACTIONS (6)
  - Pneumonia aspiration [Unknown]
  - Malignant neoplasm progression [Fatal]
  - Somnolence [Unknown]
  - Constipation [Unknown]
  - Fatigue [Unknown]
  - Asthenia [Unknown]
